FAERS Safety Report 25836300 (Version 1)
Quarter: 2025Q3

REPORT INFORMATION
  Report Type: Spontaneous
  Country: US (occurrence: None)
  Receive Date: 20250922
  Receipt Date: 20250922
  Transmission Date: 20251021
  Serious: Yes (Hospitalization)
  Sender: FDA-CTU
  Company Number: None

PATIENT
  Age: 89 Year
  Sex: Male
  Weight: 67.13 kg

DRUGS (24)
  1. FABHALTA [Suspect]
     Active Substance: IPTACOPAN HYDROCHLORIDE
     Indication: Paroxysmal nocturnal haemoglobinuria
     Dosage: FREQUENCY : TWICE A DAY;?
     Route: 048
     Dates: start: 202408
  2. TEGRETOL [Concomitant]
     Active Substance: CARBAMAZEPINE
  3. FOLIC ACID [Concomitant]
     Active Substance: FOLIC ACID
  4. OMEPRAZOLE [Concomitant]
     Active Substance: OMEPRAZOLE
  5. GABAPENTIN [Concomitant]
     Active Substance: GABAPENTIN
  6. JARDIANCE [Concomitant]
     Active Substance: EMPAGLIFLOZIN
  7. LASIX [Concomitant]
     Active Substance: FUROSEMIDE
  8. POTASSIUM CHLORIDE [Concomitant]
     Active Substance: POTASSIUM CHLORIDE
  9. ENTRESTO [Concomitant]
     Active Substance: SACUBITRIL\VALSARTAN
  10. VITAMIN D3 [Concomitant]
     Active Substance: CHOLECALCIFEROL
  11. POLYMYXIN B [Concomitant]
     Active Substance: POLYMYXIN B
  12. TRIMETHOPRIM [Concomitant]
     Active Substance: TRIMETHOPRIM
  13. Ocuvite Extra [Concomitant]
  14. NITROGLYCERIN [Concomitant]
     Active Substance: NITROGLYCERIN
  15. TYLENOL [Concomitant]
     Active Substance: ACETAMINOPHEN
  16. ASTEPRO [Concomitant]
     Active Substance: AZELASTINE HYDROCHLORIDE
  17. DECADRON [Concomitant]
     Active Substance: DEXAMETHASONE
  18. FLONASE [Concomitant]
     Active Substance: FLUTICASONE PROPIONATE
  19. MIRTAZAPINE [Concomitant]
     Active Substance: MIRTAZAPINE
  20. MIRALAX [Concomitant]
     Active Substance: POLYETHYLENE GLYCOL 3350
  21. POTASSIUM CHLORIDE [Concomitant]
     Active Substance: POTASSIUM CHLORIDE
  22. PROLENSA [Concomitant]
     Active Substance: BROMFENAC SODIUM
  23. PROMETHAZINE [Concomitant]
     Active Substance: PROMETHAZINE HYDROCHLORIDE
  24. ASPIRIN [Concomitant]
     Active Substance: ASPIRIN

REACTIONS (3)
  - Infection [None]
  - Pyrexia [None]
  - Therapy interrupted [None]

NARRATIVE: CASE EVENT DATE: 20250916
